FAERS Safety Report 15834008 (Version 1)
Quarter: 2019Q1

REPORT INFORMATION
  Report Type: Spontaneous
  Country: FR (occurrence: FR)
  Receive Date: 20190116
  Receipt Date: 20190116
  Transmission Date: 20190417
  Serious: Yes (Other)
  Sender: FDA-Public Use
  Company Number: FR-ASTRAZENECA-2019SE02947

PATIENT
  Age: 47 Year
  Sex: Female
  Weight: 69 kg

DRUGS (9)
  1. PYOSTACINE [Suspect]
     Active Substance: PRISTINAMYCIN
     Indication: SINUSITIS
     Dosage: UNK
     Route: 065
     Dates: start: 20180227
  2. PYOSTACINE [Suspect]
     Active Substance: PRISTINAMYCIN
     Indication: SINUSITIS
     Dosage: UNK UNK, UNK
     Route: 065
     Dates: start: 20161005
  3. PYOSTACINE [Suspect]
     Active Substance: PRISTINAMYCIN
     Indication: ASTHMA
     Dosage: UNK
     Route: 065
     Dates: start: 20180227
  4. PYOSTACINE [Suspect]
     Active Substance: PRISTINAMYCIN
     Indication: SINUSITIS
     Route: 065
     Dates: start: 20160318, end: 20160326
  5. PYOSTACINE [Suspect]
     Active Substance: PRISTINAMYCIN
     Indication: ASTHMA
     Route: 065
     Dates: start: 20160318, end: 20160326
  6. SYMBICORT [Suspect]
     Active Substance: BUDESONIDE\FORMOTEROL FUMARATE DIHYDRATE
     Indication: ASTHMA
     Dosage: 2 DF, DAILY
     Route: 055
     Dates: start: 20160318, end: 20160326
  7. PYOSTACINE [Suspect]
     Active Substance: PRISTINAMYCIN
     Indication: ASTHMA
     Dosage: UNK UNK, UNK
     Route: 065
     Dates: start: 20161005
  8. PYOSTACINE [Suspect]
     Active Substance: PRISTINAMYCIN
     Indication: SINUSITIS
     Dosage: UNK
     Route: 065
     Dates: start: 2017
  9. PYOSTACINE [Suspect]
     Active Substance: PRISTINAMYCIN
     Indication: ASTHMA
     Dosage: UNK
     Route: 065
     Dates: start: 2017

REACTIONS (6)
  - Transaminases increased [Unknown]
  - Gamma-glutamyltransferase increased [Unknown]
  - Hepatitis [Unknown]
  - Vomiting [Unknown]
  - Hepatic enzyme abnormal [Unknown]
  - General physical health deterioration [Unknown]

NARRATIVE: CASE EVENT DATE: 20160318
